FAERS Safety Report 10347207 (Version 1)
Quarter: 2014Q3

REPORT INFORMATION
  Report Type: Spontaneous
  Country: US (occurrence: None)
  Receive Date: 20140728
  Receipt Date: 20140728
  Transmission Date: 20150326
  Serious: Yes (Other)
  Sender: FDA-Public Use
  Company Number: None

PATIENT
  Age: 43 Year
  Sex: Male
  Weight: 65.77 kg

DRUGS (1)
  1. BUPRENORPHINE/NALOXONE [Suspect]
     Active Substance: BUPRENORPHINE\NALOXONE
     Dosage: 2 TABLETS, QD, SUBLINGUALLY
     Route: 060
     Dates: start: 20140710, end: 20140724

REACTIONS (2)
  - Retching [None]
  - Vomiting [None]

NARRATIVE: CASE EVENT DATE: 20140715
